FAERS Safety Report 8361774 (Version 2)
Quarter: 2012Q4

REPORT INFORMATION
  Report Type: 
  Country: US (occurrence: US)
  Receive Date: 20120130
  Receipt Date: 20121206
  Transmission Date: 20130627
  Serious: Yes (Hospitalization)
  Sender: FDA-Public Use
  Company Number: US-PFIZER INC-2012012804

PATIENT
  Sex: Male
  Weight: 2.4 kg

DRUGS (20)
  1. LIDOCAINE HCL [Suspect]
     Dosage: 2 doses 1mg/kg
  2. LIDOCAINE HCL [Interacting]
     Dosage: 10 ug/kg/min
  3. LIDOCAINE HCL [Interacting]
     Dosage: 40 ug/kg/min
  4. LIDOCAINE HCL [Interacting]
     Dosage: 2 boluses of 1 mg/kg
     Route: 040
  5. LIDOCAINE HCL [Interacting]
     Dosage: 50 ug/kg/min
  6. LIDOCAINE HCL [Interacting]
     Dosage: 1 mg/kg
     Route: 040
  7. PHENYTOIN [Interacting]
     Dosage: 8 mg/kg
     Route: 040
  8. PHENYTOIN [Interacting]
     Dosage: 5 mg/kg
     Route: 040
  9. AMIODARONE HCL [Interacting]
     Dosage: 1 mg/kg/dose
     Route: 040
  10. AMIODARONE HCL [Interacting]
     Dosage: 11 doses at 3 mg/dose
  11. AMIODARONE HCL [Interacting]
     Dosage: 3 boluses of 1 mg/kg
     Route: 040
  12. ESMOLOL [Concomitant]
     Dosage: 66 ug/kg/min
  13. ESMOLOL [Concomitant]
     Dosage: 30 ug/kg/min
  14. ESMOLOL [Concomitant]
     Dosage: 200 ug/kg/min
  15. ESMOLOL [Concomitant]
     Dosage: 250 ug/kg/min
  16. ESMOLOL [Concomitant]
     Dosage: 500 ug/kg/min
  17. MAGNESIUM [Concomitant]
     Dosage: 25 mg/kg per dose
  18. CALCIUM [Concomitant]
     Dosage: 10 mg/kg per dose
  19. POTASSIUM [Concomitant]
     Dosage: 1 mEq/kg per dose
  20. MILRINONE [Concomitant]
     Dosage: 0.2 ug/kg/min

REACTIONS (3)
  - Drug interaction [Recovered/Resolved]
  - Toxicity to various agents [Recovered/Resolved]
  - Neurotoxicity [Recovered/Resolved]
